FAERS Safety Report 9080799 (Version 1)
Quarter: 2013Q1

REPORT INFORMATION
  Report Type: Spontaneous
  Country: DE (occurrence: DE)
  Receive Date: 20130218
  Receipt Date: 20130218
  Transmission Date: 20140127
  Serious: Yes (Death)
  Sender: FDA-Public Use
  Company Number: DE-BRISTOL-MYERS SQUIBB COMPANY-17375189

PATIENT
  Age: 79 Year
  Sex: Female
  Weight: 74 kg

DRUGS (5)
  1. METFORMIN HCL [Suspect]
     Route: 048
  2. NOVORAPID [Concomitant]
     Dosage: 10-4-4-10
     Route: 058
  3. LEVEMIR [Concomitant]
     Dosage: 0-0-0-26
     Route: 058
  4. ACETYLSALICYLIC ACID [Concomitant]
     Dosage: 1 DF:100 UNITS NOS
     Route: 048
  5. L-THYROXINE [Concomitant]
     Route: 048

REACTIONS (3)
  - Cardiac arrest [Fatal]
  - Lactic acidosis [Fatal]
  - Renal failure acute [Fatal]
